FAERS Safety Report 10093136 (Version 1)
Quarter: 2014Q2

REPORT INFORMATION
  Report Type: Spontaneous
  Country: US (occurrence: US)
  Receive Date: 20140421
  Receipt Date: 20140421
  Transmission Date: 20141212
  Serious: No
  Sender: FDA-Public Use
  Company Number: US-SA-2013SA106611

PATIENT
  Age: 72 Year
  Sex: Female

DRUGS (2)
  1. ALLEGRA ALLERGY, 12 HR [Suspect]
     Indication: MULTIPLE ALLERGIES
     Dosage: TAKEN FROM: SUNDAY
     Route: 048
  2. VITAMINS [Suspect]
     Route: 065

REACTIONS (3)
  - Sinus disorder [Not Recovered/Not Resolved]
  - Extra dose administered [Unknown]
  - Wrong drug administered [Unknown]
